FAERS Safety Report 6356886-7 (Version None)
Quarter: 2009Q3

REPORT INFORMATION
  Report Type: 
  Country: None (occurrence: None)
  Receive Date: 20090910
  Receipt Date: 20090910
  Transmission Date: 20100115
  Serious: No
  Sender: FDA-Public Use
  Company Number: None

PATIENT
  Age: 42 Year
  Sex: Female
  Weight: 122.4712 kg

DRUGS (1)
  1. PROPOXYPHENE NAPSYLATE AND ACETAMINOPHEN [Suspect]
     Indication: BACK INJURY
     Dosage: ONE TABLET 3 X A DAY PO
     Route: 048
     Dates: start: 20050601, end: 20090909

REACTIONS (3)
  - CONSTIPATION [None]
  - POLLAKIURIA [None]
  - RESTLESSNESS [None]
